FAERS Safety Report 13152844 (Version 1)
Quarter: 2017Q1

REPORT INFORMATION
  Report Type: Spontaneous
  Country: US (occurrence: US)
  Receive Date: 20170126
  Receipt Date: 20170126
  Transmission Date: 20170428
  Serious: Yes (Hospitalization)
  Sender: FDA-Public Use
  Company Number: US-BEH-2017077523

PATIENT
  Age: 63 Year
  Sex: Male
  Weight: 162.81 kg

DRUGS (31)
  1. HIZENTRA [Suspect]
     Active Substance: HUMAN IMMUNOGLOBULIN G
     Dosage: UNK
     Route: 058
  2. EPIPEN [Concomitant]
     Active Substance: EPINEPHRINE
  3. MAGNESIUM OXIDE. [Concomitant]
     Active Substance: MAGNESIUM OXIDE
  4. XALATAN [Concomitant]
     Active Substance: LATANOPROST
  5. PREDNISONE. [Concomitant]
     Active Substance: PREDNISONE
  6. HIZENTRA [Suspect]
     Active Substance: HUMAN IMMUNOGLOBULIN G
     Indication: IMMUNODEFICIENCY COMMON VARIABLE
     Dosage: 15 G, QW
     Route: 058
     Dates: start: 20130221
  7. NOVOLOG [Concomitant]
     Active Substance: INSULIN ASPART
  8. MUCINEX [Concomitant]
     Active Substance: GUAIFENESIN
  9. VITAMIN B [Concomitant]
     Active Substance: VITAMIN B
  10. SPIRIVA [Concomitant]
     Active Substance: TIOTROPIUM BROMIDE MONOHYDRATE
  11. TRAMADOL. [Concomitant]
     Active Substance: TRAMADOL
  12. ALBUTEROL                          /00139501/ [Concomitant]
     Active Substance: ALBUTEROL
  13. CALCIUM [Concomitant]
     Active Substance: CALCIUM
  14. PROBIOTIC                          /06395501/ [Concomitant]
     Active Substance: BIFIDOBACTERIUM ANIMALIS SUBSP. LACTIS
  15. VITAMIN D3 [Concomitant]
     Active Substance: CHOLECALCIFEROL
  16. LANTUS [Concomitant]
     Active Substance: INSULIN GLARGINE
  17. THEOPHYLLINE [Concomitant]
     Active Substance: THEOPHYLLINE ANHYDROUS
  18. CARDIZEM [Concomitant]
     Active Substance: DILTIAZEM HYDROCHLORIDE
  19. BUMETANIDE. [Concomitant]
     Active Substance: BUMETANIDE
  20. IRON [Concomitant]
     Active Substance: IRON
  21. HIZENTRA [Suspect]
     Active Substance: HUMAN IMMUNOGLOBULIN G
     Dosage: UNK
     Route: 058
  22. ALPHAGAN P [Concomitant]
     Active Substance: BRIMONIDINE TARTRATE
  23. TYLENOL EXTRA STRENGTH [Concomitant]
     Active Substance: ACETAMINOPHEN
  24. ELIQUIS [Concomitant]
     Active Substance: APIXABAN
  25. ASPIRIN. [Concomitant]
     Active Substance: ASPIRIN
  26. ALLOPURINOL. [Concomitant]
     Active Substance: ALLOPURINOL
  27. LISINOPRIL. [Concomitant]
     Active Substance: LISINOPRIL
  28. LEXAPRO [Concomitant]
     Active Substance: ESCITALOPRAM OXALATE
  29. ASMANEX [Concomitant]
     Active Substance: MOMETASONE FUROATE
  30. XOPENEX [Concomitant]
     Active Substance: LEVALBUTEROL HYDROCHLORIDE
  31. SINGULAIR [Concomitant]
     Active Substance: MONTELUKAST SODIUM

REACTIONS (1)
  - Atrial fibrillation [Unknown]

NARRATIVE: CASE EVENT DATE: 20161221
